FAERS Safety Report 10563753 (Version 2)
Quarter: 2014Q4

REPORT INFORMATION
  Report Type: Spontaneous
  Country: US (occurrence: US)
  Receive Date: 20141104
  Receipt Date: 20141204
  Transmission Date: 20150529
  Serious: No
  Sender: FDA-Public Use
  Company Number: US-GLAXOSMITHKLINE-US2014GSK016004

PATIENT
  Sex: Male
  Weight: 156 kg

DRUGS (19)
  1. ASPIRIN. [Concomitant]
     Active Substance: ASPIRIN
  2. PRAVASTATIN [Concomitant]
     Active Substance: PRAVASTATIN\PRAVASTATIN SODIUM
  3. VOTRIENT [Suspect]
     Active Substance: PAZOPANIB HYDROCHLORIDE
     Dosage: 800 MG, QD
     Route: 048
     Dates: end: 20141202
  4. HYDROCHLOROTHIAZIDE. [Concomitant]
     Active Substance: HYDROCHLOROTHIAZIDE
  5. PROTONIX [Concomitant]
     Active Substance: PANTOPRAZOLE SODIUM
  6. EFFEXOR [Concomitant]
     Active Substance: VENLAFAXINE HYDROCHLORIDE
  7. ENALAPRIL [Concomitant]
     Active Substance: ENALAPRIL
  8. METOPROLOL [Concomitant]
     Active Substance: METOPROLOL
  9. ALEVE [Concomitant]
     Active Substance: NAPROXEN SODIUM
  10. CLONAZEPAM. [Concomitant]
     Active Substance: CLONAZEPAM
  11. MULTIVITAMIN [Concomitant]
     Active Substance: VITAMINS
  12. VOTRIENT [Suspect]
     Active Substance: PAZOPANIB HYDROCHLORIDE
     Indication: RENAL CANCER
     Dosage: 800 MG, QD
     Route: 048
     Dates: start: 20140916
  13. MORPHINE [Concomitant]
     Active Substance: MORPHINE
  14. DILAUDID [Concomitant]
     Active Substance: HYDROMORPHONE HYDROCHLORIDE
  15. TRIAZOLAM. [Concomitant]
     Active Substance: TRIAZOLAM
  16. VITAMIN D [Concomitant]
     Active Substance: CHOLECALCIFEROL
  17. XANAX [Concomitant]
     Active Substance: ALPRAZOLAM
  18. CALCIUM [Concomitant]
     Active Substance: CALCIUM
  19. PLAVIX [Concomitant]
     Active Substance: CLOPIDOGREL BISULFATE

REACTIONS (3)
  - Neoplasm progression [Unknown]
  - Drug ineffective [Unknown]
  - Burn oesophageal [Unknown]
